FAERS Safety Report 7016037-2 (Version None)
Quarter: 2010Q3

REPORT INFORMATION
  Report Type: 
  Country: None (occurrence: None)
  Receive Date: 20100922
  Receipt Date: 20100909
  Transmission Date: 20110219
  Serious: Yes (Hospitalization)
  Sender: FDA-Public Use
  Company Number: 2010AP001950

PATIENT
  Age: 60 Year
  Sex: Female

DRUGS (5)
  1. ALENDRONATE SODIUM [Suspect]
     Indication: OSTEOMYELITIS
     Dosage: 70 MG;QW, PO
     Route: 048
  2. CHLORPHENIRAMINE MALEATE [Concomitant]
  3. DIHYDROCODEINE COMPOUND [Concomitant]
  4. FUCICORT (FUCICORT) [Concomitant]
  5. NAPROXEN [Concomitant]

REACTIONS (2)
  - ABSCESS JAW [None]
  - OSTEOMYELITIS [None]
